FAERS Safety Report 8687989 (Version 2)
Quarter: 2013Q3

REPORT INFORMATION
  Report Type: Spontaneous
  Country: BR (occurrence: BR)
  Receive Date: 20120727
  Receipt Date: 20130712
  Transmission Date: 20140515
  Serious: Yes (Hospitalization)
  Sender: FDA-Public Use
  Company Number: BR-ROCHE-1089588

PATIENT
  Sex: Male
  Weight: 95 kg

DRUGS (9)
  1. RIVOTRIL [Suspect]
     Indication: FEELING OF RELAXATION
     Route: 048
  2. RIVOTRIL [Suspect]
     Indication: SLEEP DISORDER
  3. HYDROCHLOROTHIAZIDE/LOSARTAN POTASSIUM [Suspect]
     Indication: HYPERTENSION
     Dosage: DRUG WAS REPORTED AS ZAART-H
     Route: 065
  4. ZETIA [Concomitant]
     Indication: BLOOD TRIGLYCERIDES INCREASED
     Route: 065
  5. ZETIA [Concomitant]
     Indication: BLOOD CHOLESTEROL INCREASED
  6. CRESTOR [Concomitant]
     Indication: BLOOD TRIGLYCERIDES INCREASED
     Route: 065
  7. CRESTOR [Concomitant]
     Indication: BLOOD CHOLESTEROL INCREASED
  8. ASPIRINA [Concomitant]
     Dosage: REPORTED AS ASPIRINA PREVENT
     Route: 065
  9. ZYLORIC [Concomitant]
     Indication: BLOOD URIC ACID INCREASED
     Route: 065

REACTIONS (6)
  - Heart injury [Unknown]
  - Blood testosterone decreased [Unknown]
  - Drug dependence [Unknown]
  - Drug ineffective [Unknown]
  - Blood triglycerides abnormal [Unknown]
  - Blood cholesterol abnormal [Unknown]
